FAERS Safety Report 22258970 (Version 4)
Quarter: 2023Q2

REPORT INFORMATION
  Report Type: Spontaneous
  Country: CN (occurrence: CN)
  Receive Date: 20230427
  Receipt Date: 20230505
  Transmission Date: 20230721
  Serious: Yes (Other)
  Sender: FDA-Public Use
  Company Number: CN-TAKEDA-2023TUS037447

PATIENT
  Age: 62 Year
  Sex: Male

DRUGS (7)
  1. PANTOPRAZOLE [Interacting]
     Active Substance: PANTOPRAZOLE
     Indication: Helicobacter infection
     Dosage: 40 MG, 2X/DAY
     Route: 048
  2. CLARITHROMYCIN [Interacting]
     Active Substance: CLARITHROMYCIN
     Indication: Helicobacter infection
     Dosage: 0.5 G, 2X/DAY
     Route: 048
  3. AMOXICILLIN [Interacting]
     Active Substance: AMOXICILLIN
     Indication: Helicobacter infection
     Dosage: 1 G, 2X/DAY
     Route: 048
  4. ATORVASTATIN CALCIUM [Interacting]
     Active Substance: ATORVASTATIN CALCIUM
     Indication: Arteriosclerosis
     Dosage: 20 MG, 1X/DAY
  5. BISMUTH TARTRATE [Interacting]
     Active Substance: BISMUTH TARTRATE
     Indication: Helicobacter infection
     Dosage: 220 MG, 2X/DAY
     Route: 048
  6. ASPIRIN [Concomitant]
     Active Substance: ASPIRIN
     Indication: Arteriosclerosis
     Dosage: 100 MG, 4X/DAY
  7. CLOPIDOGREL [Concomitant]
     Active Substance: CLOPIDOGREL BISULFATE
     Indication: Arteriosclerosis

REACTIONS (3)
  - Drug interaction [Unknown]
  - Rhabdomyolysis [Recovered/Resolved]
  - Drug-induced liver injury [Unknown]
